FAERS Safety Report 7234924-7 (Version None)
Quarter: 2011Q1

REPORT INFORMATION
  Report Type: 
  Country: None (occurrence: None)
  Receive Date: 20110120
  Receipt Date: 20110107
  Transmission Date: 20110831
  Serious: Yes (Other)
  Sender: FDA-Public Use
  Company Number: PHFR2010GB04883

PATIENT
  Sex: Female

DRUGS (2)
  1. CLOZARIL [Suspect]
     Indication: SCHIZOPHRENIA
     Dosage: 300 MG AT NIGHT
     Route: 048
     Dates: start: 20100511
  2. CLOZARIL [Suspect]
     Dosage: 200 MG AT NIGHT
     Route: 048
     Dates: start: 20100917

REACTIONS (3)
  - HYPERHIDROSIS [None]
  - NEUROPATHY PERIPHERAL [None]
  - MALAISE [None]
